FAERS Safety Report 7634302-2 (Version None)
Quarter: 2011Q3

REPORT INFORMATION
  Report Type: 
  Country: None (occurrence: None)
  Receive Date: 20110725
  Receipt Date: 20110714
  Transmission Date: 20111222
  Serious: Yes (Other)
  Sender: FDA-Public Use
  Company Number: US-ASTRAZENECA-2010SE11727

PATIENT
  Age: 47 Year
  Sex: Female

DRUGS (1)
  1. NEXIUM [Suspect]
     Route: 048

REACTIONS (14)
  - HEPATIC CIRRHOSIS [None]
  - OVARIAN CANCER [None]
  - DYSPHAGIA [None]
  - HEPATITIS C [None]
  - HEPATOMEGALY [None]
  - OROPHARYNGEAL PAIN [None]
  - DYSPEPSIA [None]
  - INCORRECT DOSE ADMINISTERED [None]
  - DRUG DOSE OMISSION [None]
  - HOT FLUSH [None]
  - NECK INJURY [None]
  - ROAD TRAFFIC ACCIDENT [None]
  - NEOPLASM MALIGNANT [None]
  - JOINT INJURY [None]
